FAERS Safety Report 9719174 (Version 1)
Quarter: 2013Q4

REPORT INFORMATION
  Report Type: Spontaneous
  Country: TW (occurrence: TW)
  Receive Date: 20131127
  Receipt Date: 20131127
  Transmission Date: 20140711
  Serious: Yes (Hospitalization)
  Sender: FDA-Public Use
  Company Number: PHHY2013TW133343

PATIENT
  Age: 42 Year
  Sex: Female

DRUGS (1)
  1. CO-TRIMOXAZOLE [Suspect]
     Indication: PNEUMOCYSTIS JIROVECII INFECTION
     Dosage: 320 MG, TID
     Route: 042

REACTIONS (8)
  - Substance-induced psychotic disorder [Recovered/Resolved]
  - Acute psychosis [Recovered/Resolved]
  - Restlessness [Recovered/Resolved]
  - Sleep disorder [Recovered/Resolved]
  - Hallucination, visual [Recovered/Resolved]
  - Psychotic behaviour [Recovered/Resolved]
  - Confusional state [Recovered/Resolved]
  - Tremor [Recovered/Resolved]
